FAERS Safety Report 6869673-8 (Version None)
Quarter: 2010Q3

REPORT INFORMATION
  Report Type: 
  Country: None (occurrence: None)
  Receive Date: 20100722
  Receipt Date: 20080818
  Transmission Date: 20110219
  Serious: No
  Sender: FDA-Public Use
  Company Number: US-PFIZER INC-2008070395

PATIENT
  Sex: Female

DRUGS (2)
  1. CHANTIX [Suspect]
     Indication: SMOKING CESSATION THERAPY
     Dates: start: 20080728, end: 20080731
  2. ORAL CONTRACEPTIVE NOS [Concomitant]

REACTIONS (4)
  - DEPRESSION [None]
  - DYSARTHRIA [None]
  - MEMORY IMPAIRMENT [None]
  - WEIGHT INCREASED [None]
